FAERS Safety Report 23884897 (Version 1)
Quarter: 2024Q2

REPORT INFORMATION
  Report Type: Spontaneous
  Country: ES (occurrence: ES)
  Receive Date: 20240522
  Receipt Date: 20240522
  Transmission Date: 20240716
  Serious: Yes (Hospitalization)
  Sender: FDA-Public Use
  Company Number: ES-HALEON-2175060

PATIENT
  Age: 89 Year
  Sex: Male

DRUGS (2)
  1. VOLTAREN [Suspect]
     Active Substance: DICLOFENAC SODIUM
     Indication: Pain
     Dosage: UNKNOWN DOSE
     Route: 048
     Dates: start: 20240228, end: 20240301
  2. DEXKETOPROFEN TROMETAMOL [Suspect]
     Active Substance: DEXKETOPROFEN TROMETAMOL
     Indication: Pain
     Route: 048
     Dates: start: 20240224, end: 20240228

REACTIONS (2)
  - Gastrointestinal haemorrhage [Recovered/Resolved]
  - Anaemia [Recovered/Resolved]

NARRATIVE: CASE EVENT DATE: 20240228
